FAERS Safety Report 16726940 (Version 2)
Quarter: 2019Q3

REPORT INFORMATION
  Report Type: Report from Study
  Country: US (occurrence: US)
  Receive Date: 20190821
  Receipt Date: 20190917
  Transmission Date: 20191005
  Serious: Yes (Hospitalization)
  Sender: FDA-Public Use
  Company Number: US-SEATTLE GENETICS-2019SGN02874

PATIENT
  Age: 58 Year
  Sex: Male
  Weight: 55.7 kg

DRUGS (6)
  1. BLOOD TRANSFUSION, AUXILIARY PRODUCTS [Concomitant]
     Active Substance: HUMAN RED BLOOD CELL
     Route: 065
  2. CYCLOPHOSPHAMIDE. [Suspect]
     Active Substance: CYCLOPHOSPHAMIDE
     Indication: ANGIOIMMUNOBLASTIC T-CELL LYMPHOMA
     Dosage: 750 MG/M2, Q3WEEKS
     Route: 042
     Dates: start: 20190619, end: 20190619
  3. BRENTUXIMAB VEDOTIN [Suspect]
     Active Substance: BRENTUXIMAB VEDOTIN
     Indication: ANGIOIMMUNOBLASTIC T-CELL LYMPHOMA
     Dosage: 1.8 MG/KG, Q3WEEKS
     Route: 042
     Dates: start: 20190619, end: 20190619
  4. ETOPOSIDE. [Suspect]
     Active Substance: ETOPOSIDE
     Indication: ANGIOIMMUNOBLASTIC T-CELL LYMPHOMA
     Dosage: 100 MG/M2, QCYCLE
     Route: 042
     Dates: start: 20190619, end: 20190619
  5. PREDNISONE. [Suspect]
     Active Substance: PREDNISONE
     Indication: ANGIOIMMUNOBLASTIC T-CELL LYMPHOMA
     Dosage: 100 MG, QCYCLE
     Route: 048
     Dates: start: 20190619, end: 20190624
  6. DOXORUBICIN [Suspect]
     Active Substance: DOXORUBICIN
     Indication: ANGIOIMMUNOBLASTIC T-CELL LYMPHOMA
     Dosage: 50 MG/M2, Q3WEEKS
     Route: 042
     Dates: start: 20190619, end: 20190619

REACTIONS (2)
  - Thrombocytopenia [Recovered/Resolved]
  - Anaemia [Recovered/Resolved]

NARRATIVE: CASE EVENT DATE: 20190702
